FAERS Safety Report 8310638-7 (Version None)
Quarter: 2012Q2

REPORT INFORMATION
  Report Type: 
  Country: None (occurrence: None)
  Receive Date: 20120425
  Receipt Date: 20120416
  Transmission Date: 20120825
  Serious: Yes (Death, Other)
  Sender: FDA-Public Use
  Company Number: JP-CELGENEUS-087-50794-11071047

PATIENT
  Sex: Male

DRUGS (42)
  1. SENNOSIDE [Concomitant]
     Dosage: 24 MILLIGRAM
     Route: 048
     Dates: start: 20110423, end: 20110629
  2. GRANISETRON [Concomitant]
     Dosage: 3 MILLIGRAM
     Route: 048
     Dates: start: 20110420, end: 20110428
  3. CEFOTIAM HYDROCHLORIDE [Concomitant]
     Dosage: 2 GRAM
     Route: 041
     Dates: start: 20110501, end: 20110506
  4. MAXIPIME [Concomitant]
     Dosage: 2 GRAM
     Route: 041
     Dates: start: 20110626, end: 20110628
  5. MEROPENEM [Concomitant]
     Dosage: 1 GRAM
     Route: 041
     Dates: start: 20110607, end: 20110617
  6. MEROPENEM [Concomitant]
     Dosage: .5 GRAM
     Route: 041
     Dates: start: 20110701, end: 20110714
  7. GRAN [Concomitant]
     Dosage: 150 MICROGRAM
     Route: 041
     Dates: start: 20110528, end: 20110615
  8. AMSULMYLAN [Concomitant]
     Route: 041
     Dates: start: 20110628, end: 20110701
  9. ALBUMIN (HUMAN) [Concomitant]
     Dosage: 50 MILLILITER
     Route: 041
     Dates: start: 20110710, end: 20110710
  10. MUCODYNE [Concomitant]
     Dosage: 1000 MILLIGRAM
     Route: 065
     Dates: start: 20110407, end: 20110629
  11. VOLTAREN [Concomitant]
     Dosage: 1000 MILLIGRAM
     Route: 054
     Dates: start: 20110406, end: 20110621
  12. AMLODIPINE BESYLATE [Concomitant]
     Dosage: 5 MILLIGRAM
     Route: 048
     Dates: start: 20110407, end: 20110629
  13. LANSOPRAZOLE [Concomitant]
     Dosage: 15 MILLIGRAM
     Route: 048
     Dates: end: 20110629
  14. ALBUMIN (HUMAN) [Concomitant]
     Dosage: 50 MILLILITER
     Route: 041
     Dates: start: 20110706, end: 20110706
  15. ALBUMIN (HUMAN) [Concomitant]
     Dosage: 50 MILLILITER
     Route: 041
     Dates: start: 20110708, end: 20110708
  16. ASPIRIN [Concomitant]
     Dosage: 100 MILLIGRAM
     Route: 048
     Dates: end: 20110629
  17. MASHI-NIN-GAN [Concomitant]
     Dosage: 6 GRAM
     Route: 048
     Dates: start: 20110407, end: 20110629
  18. FLUMARIN [Concomitant]
     Dosage: 2 GRAM
     Route: 041
     Dates: start: 20110507, end: 20110520
  19. DEXAMETHASONE SODIUM PHOSPHATE [Concomitant]
     Dosage: 3.3 MILLIGRAM
     Route: 041
     Dates: start: 20110621, end: 20110621
  20. NEUPOGEN [Concomitant]
     Route: 065
  21. MICAFUNGIN SODIUM [Concomitant]
     Route: 065
  22. VENILON [Concomitant]
     Dosage: 5 GRAM
     Route: 041
     Dates: start: 20110630, end: 20110630
  23. ELEMENMIC [Concomitant]
     Dosage: 2 MILLILITER
     Route: 041
     Dates: start: 20110701, end: 20110714
  24. CANDESARTAN CILEXETIL [Concomitant]
     Dosage: 8 MILLIGRAM
     Route: 048
     Dates: end: 20110629
  25. MAXIPIME [Concomitant]
     Dosage: 2 GRAM
     Route: 041
     Dates: start: 20110507, end: 20110520
  26. VENILON [Concomitant]
     Dosage: 5 GRAM
     Route: 041
     Dates: start: 20110628, end: 20110629
  27. ALBUMIN (HUMAN) [Concomitant]
     Dosage: 50 MILLILITER
     Route: 041
     Dates: start: 20110701, end: 20110703
  28. VIDAZA [Suspect]
     Dosage: 75 MILLIGRAM/SQ. METER
     Route: 058
     Dates: start: 20110519, end: 20110527
  29. VIDAZA [Suspect]
     Dosage: 75 MILLIGRAM/SQ. METER
     Route: 041
     Dates: start: 20110621, end: 20110624
  30. TELEMINSOFT [Concomitant]
     Dosage: 10 MILLIGRAM
     Route: 054
     Dates: start: 20110423, end: 20110610
  31. LEVOFLOXACIN [Concomitant]
     Dosage: 500 MILLIGRAM
     Route: 048
     Dates: start: 20110626, end: 20110709
  32. AMPHOTERICIN B [Concomitant]
     Route: 065
  33. MEROPENEM [Concomitant]
     Route: 065
  34. ALBUMIN (HUMAN) [Concomitant]
     Dosage: 50 MILLILITER
     Route: 041
     Dates: start: 20110713, end: 20110713
  35. VIDAZA [Suspect]
     Dosage: 75 MILLIGRAM/SQ. METER
     Route: 058
     Dates: start: 20110420, end: 20110428
  36. DOXAZOSIN MESYLATE [Concomitant]
     Dosage: 2 MILLIGRAM
     Route: 048
     Dates: end: 20110629
  37. COMELIAN [Concomitant]
     Dosage: 100 MILLIGRAM
     Route: 048
     Dates: start: 20110407, end: 20110629
  38. CEFOTIAM HYDROCHLORIDE [Concomitant]
     Route: 065
  39. NEOAMIYU [Concomitant]
     Dosage: 200 MILLILITER
     Route: 041
     Dates: start: 20110701, end: 20110714
  40. TRICHLORMETHIAZIDE [Concomitant]
     Dosage: 2 MILLIGRAM
     Route: 048
     Dates: start: 20110407, end: 20110629
  41. ALBUMIN (HUMAN) [Concomitant]
     Dosage: 50 MILLILITER
     Route: 041
     Dates: start: 20110704, end: 20110704
  42. ACMAIN [Concomitant]
     Route: 041
     Dates: start: 20110509, end: 20110606

REACTIONS (2)
  - SEPSIS [None]
  - RENAL FAILURE ACUTE [None]
